FAERS Safety Report 6017890-1 (Version None)
Quarter: 2008Q4

REPORT INFORMATION
  Report Type: 
  Country: None (occurrence: None)
  Receive Date: 20081223
  Receipt Date: 20081215
  Transmission Date: 20090506
  Serious: No
  Sender: FDA-Public Use
  Company Number: US-JNJFOC-20081204510

PATIENT
  Sex: Female
  Weight: 113.4 kg

DRUGS (6)
  1. DURAGESIC-100 [Suspect]
     Indication: BACK PAIN
     Route: 062
  2. DURAGESIC-100 [Suspect]
     Indication: FIBROMYALGIA
     Route: 062
  3. HYDROCODONE BITARTRATE [Concomitant]
     Indication: PAIN
     Dosage: 7.5/100MG/TABLET
     Route: 048
  4. SOMA [Concomitant]
     Indication: PAIN
     Route: 048
  5. AMERGE [Concomitant]
     Indication: MIGRAINE
     Dosage: AS NEEDED
     Route: 048
  6. AMBION [Concomitant]
     Indication: SLEEP DISORDER
     Route: 048

REACTIONS (8)
  - AGITATION [None]
  - APPLICATION SITE ERYTHEMA [None]
  - APPLICATION SITE PAIN [None]
  - APPLICATION SITE PRURITUS [None]
  - APPLICATION SITE VESICLES [None]
  - DRUG DOSE OMISSION [None]
  - WITHDRAWAL SYNDROME [None]
  - WRONG TECHNIQUE IN DRUG USAGE PROCESS [None]
